FAERS Safety Report 10386977 (Version 2)
Quarter: 2014Q3

REPORT INFORMATION
  Report Type: Spontaneous
  Country: US (occurrence: US)
  Receive Date: 20140815
  Receipt Date: 20140815
  Transmission Date: 20150326
  Serious: Yes (Other)
  Sender: FDA-Public Use
  Company Number: US-BAYER-2014-119049

PATIENT
  Sex: Female

DRUGS (1)
  1. MIRENA [Suspect]
     Active Substance: LEVONORGESTREL
     Dosage: 20 MCG/24HR, CONT
     Route: 015

REACTIONS (13)
  - Genital haemorrhage [None]
  - Feeling abnormal [None]
  - Food craving [None]
  - Dyspareunia [None]
  - Vulvovaginal discomfort [None]
  - Skin atrophy [None]
  - Weight loss poor [None]
  - Breast discharge [None]
  - Fatigue [None]
  - Pain [None]
  - Breast swelling [None]
  - Muscle spasms [None]
  - Skin fragility [None]
